FAERS Safety Report 19693678 (Version 2)
Quarter: 2021Q3

REPORT INFORMATION
  Report Type: Other
  Country: CZ (occurrence: CZ)
  Receive Date: 20210813
  Receipt Date: 20210818
  Transmission Date: 20211014
  Serious: Yes (Other)
  Sender: FDA-Public Use
  Company Number: CZ-CELLTRION INC.-2021CZ010790

PATIENT

DRUGS (8)
  1. TRITACE [Concomitant]
     Active Substance: RAMIPRIL
  2. MICTONORM [Concomitant]
     Active Substance: PROPIVERINE HYDROCHLORIDE
  3. ORAMELLOX [Concomitant]
     Active Substance: MELOXICAM
  4. CITALOPRAM [Concomitant]
     Active Substance: CITALOPRAM HYDROBROMIDE
  5. DORETA [Concomitant]
     Active Substance: ACETAMINOPHEN\TRAMADOL HYDROCHLORIDE
  6. REMSIMA [Suspect]
     Active Substance: INFLIXIMAB
     Indication: ANKYLOSING SPONDYLITIS
     Dosage: 400 MG, EVERY 6 WEEKS
     Route: 042
     Dates: start: 20200827, end: 20200911
  7. HUMIRA [Suspect]
     Active Substance: ADALIMUMAB
     Indication: ANKYLOSING SPONDYLITIS
     Dosage: 40 MG, EVERY 14 DAYS
     Route: 058
     Dates: start: 201803, end: 20200824
  8. KINITO [Concomitant]

REACTIONS (4)
  - Pemphigoid [Recovered/Resolved]
  - Gingival oedema [Recovered/Resolved]
  - Vulvovaginal exfoliation [Recovered/Resolved]
  - Oral mucosal exfoliation [Recovered/Resolved]

NARRATIVE: CASE EVENT DATE: 20200817
